FAERS Safety Report 21045636 (Version 1)
Quarter: 2022Q3

REPORT INFORMATION
  Report Type: Spontaneous
  Country: US (occurrence: US)
  Receive Date: 20220706
  Receipt Date: 20220706
  Transmission Date: 20221027
  Serious: No
  Sender: FDA-Public Use
  Company Number: ENDG21-05467

PATIENT
  Sex: Female

DRUGS (1)
  1. CALCITONIN SALMON [Suspect]
     Active Substance: CALCITONIN SALMON
     Indication: Product used for unknown indication
     Dosage: UNK UNKNOWN, UNKNOWN
     Route: 065

REACTIONS (8)
  - Oesophagitis [Unknown]
  - Oropharyngeal pain [Unknown]
  - Oesophageal discomfort [Unknown]
  - Dysphagia [Unknown]
  - Nasal oedema [Unknown]
  - Analgesic therapy [Unknown]
  - Pharyngeal swelling [Unknown]
  - Product leakage [Unknown]
